FAERS Safety Report 16754663 (Version 1)
Quarter: 2019Q3

REPORT INFORMATION
  Report Type: Spontaneous
  Country: US (occurrence: US)
  Receive Date: 20190829
  Receipt Date: 20190829
  Transmission Date: 20191005
  Serious: No
  Sender: FDA-Public Use
  Company Number: US-TEVA-2019-US-1100880

PATIENT
  Sex: Female

DRUGS (1)
  1. QNASL [Suspect]
     Active Substance: BECLOMETHASONE DIPROPIONATE
     Indication: HYPERSENSITIVITY
     Route: 045
     Dates: start: 2017

REACTIONS (3)
  - Device difficult to use [Unknown]
  - Inappropriate schedule of product administration [Unknown]
  - Hypersensitivity [Unknown]
